FAERS Safety Report 18033765 (Version 9)
Quarter: 2022Q1

REPORT INFORMATION
  Report Type: Spontaneous
  Country: DO (occurrence: DO)
  Receive Date: 20200716
  Receipt Date: 20220321
  Transmission Date: 20220424
  Serious: Yes (Other)
  Sender: FDA-Public Use
  Company Number: DO-PFIZER INC-2020268018

PATIENT
  Age: 4 Year
  Sex: Female

DRUGS (1)
  1. GENOTROPIN [Suspect]
     Active Substance: SOMATROPIN
     Dosage: UNK

REACTIONS (11)
  - Intentional product use issue [Unknown]
  - Seizure [Unknown]
  - Hypoglycaemia [Unknown]
  - Chills [Unknown]
  - Pallor [Unknown]
  - Hyperhidrosis [Unknown]
  - Cough [Unknown]
  - Hiccups [Unknown]
  - Expired device used [Unknown]
  - Device issue [Unknown]
  - Needle issue [Unknown]

NARRATIVE: CASE EVENT DATE: 20200101
